FAERS Safety Report 4604888-0 (Version None)
Quarter: 2005Q1

REPORT INFORMATION
  Report Type: 
  Country: None (occurrence: None)
  Receive Date: 20050310
  Receipt Date: 20050310
  Transmission Date: 20050727
  Serious: Yes (Death)
  Sender: FDA-Public Use
  Company Number: None

PATIENT
  Age: 56 Year
  Sex: Female
  Weight: 85.7298 kg

DRUGS (12)
  1. VIDEX EC [Suspect]
     Indication: HIV INFECTION
     Dosage: 250 MG QD ORAL
     Route: 048
     Dates: start: 20030520, end: 20050301
  2. TRUVADA [Suspect]
     Indication: HIV INFECTION
     Dosage: 1 TAB QD ORAL
     Route: 048
     Dates: start: 20040818, end: 20050301
  3. CLARITIN [Concomitant]
  4. PRILOSEC [Concomitant]
  5. PROCARDIA XL [Concomitant]
  6. MONOPRIL [Concomitant]
  7. LASIX [Concomitant]
  8. VICODIN [Concomitant]
  9. CALCIUM CARBONATE [Concomitant]
  10. GLYBURIDE [Concomitant]
  11. COREG [Concomitant]
  12. VIOXX [Concomitant]

REACTIONS (2)
  - CHEST PAIN [None]
  - DYSPNOEA [None]
